FAERS Safety Report 7759862-2 (Version None)
Quarter: 2011Q3

REPORT INFORMATION
  Report Type: 
  Country: None (occurrence: None)
  Receive Date: 20110919
  Receipt Date: 20110908
  Transmission Date: 20111222
  Serious: Yes (Hospitalization, Other)
  Sender: FDA-Public Use
  Company Number: US-JNJFOC-20110107990

PATIENT
  Sex: Male
  Weight: 12.7 kg

DRUGS (8)
  1. PROBIOTICS [Concomitant]
  2. INFLIXIMAB, RECOMBINANT [Suspect]
     Route: 042
     Dates: start: 20101122
  3. PREDNISONE [Concomitant]
  4. INFLIXIMAB, RECOMBINANT [Suspect]
     Indication: CROHN'S DISEASE
     Route: 042
     Dates: start: 20091111
  5. ACETAMINOPHEN [Concomitant]
  6. HYDROCODONE [Suspect]
     Indication: ILL-DEFINED DISORDER
  7. FEOSOL [Concomitant]
  8. MORPHINE [Suspect]
     Indication: ILL-DEFINED DISORDER

REACTIONS (4)
  - GASTROINTESTINAL STOMA COMPLICATION [None]
  - HYPOKALAEMIA [None]
  - HYPONATRAEMIA [None]
  - POSTOPERATIVE ILEUS [None]
